FAERS Safety Report 9490519 (Version 2)
Quarter: 2013Q3

REPORT INFORMATION
  Report Type: Spontaneous
  Country: US (occurrence: US)
  Receive Date: 20130830
  Receipt Date: 20130830
  Transmission Date: 20140515
  Serious: Yes (Other)
  Sender: FDA-Public Use
  Company Number: US-CELGENEUS-163-21880-13070903

PATIENT
  Age: 55 Year
  Sex: Male

DRUGS (6)
  1. REVLIMID [Suspect]
     Indication: PLASMA CELL MYELOMA
     Dosage: 5 MILLIGRAM
     Route: 048
     Dates: start: 201107, end: 2011
  2. REVLIMID [Suspect]
     Dosage: 10 MILLIGRAM
     Route: 048
     Dates: start: 201108, end: 201110
  3. REVLIMID [Suspect]
     Dosage: 15 MILLIGRAM
     Route: 048
     Dates: start: 201110, end: 2012
  4. REVLIMID [Suspect]
     Dosage: 10 MILLIGRAM
     Route: 048
     Dates: start: 201207, end: 20130701
  5. OXYCODONE [Concomitant]
     Indication: PAIN
     Dosage: 30 MILLIGRAM
     Route: 065
     Dates: start: 2010
  6. PAMIDRONATE [Concomitant]
     Indication: OSTEOPENIA
     Route: 041
     Dates: start: 201010, end: 201210

REACTIONS (1)
  - Osteonecrosis of jaw [Recovering/Resolving]
